FAERS Safety Report 5537220-9 (Version None)
Quarter: 2007Q4

REPORT INFORMATION
  Report Type: 
  Country: None (occurrence: None)
  Receive Date: 20071207
  Receipt Date: 20071126
  Transmission Date: 20080405
  Serious: Yes (Hospitalization)
  Sender: FDA-Public Use
  Company Number: US-AMGEN-STX251579

PATIENT
  Sex: Male

DRUGS (4)
  1. ENBREL [Suspect]
     Indication: PSORIASIS
     Route: 058
     Dates: start: 20050601, end: 20071026
  2. NIFEDIPINE [Concomitant]
     Route: 048
  3. NIACIN [Concomitant]
     Route: 048
  4. ASPIRIN [Concomitant]
     Route: 048

REACTIONS (11)
  - ANOREXIA [None]
  - CONSTIPATION [None]
  - HEPATITIS VIRAL [None]
  - HYPONATRAEMIA [None]
  - LIVER FUNCTION TEST ABNORMAL [None]
  - MICTURITION URGENCY [None]
  - PNEUMONIA [None]
  - THROMBOCYTOPENIA [None]
  - TUBERCULOSIS [None]
  - URINARY HESITATION [None]
  - VOMITING [None]
